FAERS Safety Report 21106133 (Version 1)
Quarter: 2022Q3

REPORT INFORMATION
  Report Type: Spontaneous
  Country: US (occurrence: None)
  Receive Date: 20220720
  Receipt Date: 20220720
  Transmission Date: 20221027
  Serious: No
  Sender: FDA-Public Use
  Company Number: None

PATIENT
  Age: 77 Year
  Sex: 0

DRUGS (4)
  1. AMBRISENTAN [Suspect]
     Active Substance: AMBRISENTAN
     Indication: Pulmonary arterial hypertension
     Dosage: FREQUENCY : DAILY;?
     Route: 048
  2. UPTRAVI [Suspect]
     Active Substance: SELEXIPAG
  3. ADEMPAS [Suspect]
     Active Substance: RIOCIGUAT
  4. SPIRONOLACTONE [Suspect]
     Active Substance: SPIRONOLACTONE

REACTIONS (3)
  - Rhinorrhoea [None]
  - Breast tenderness [None]
  - Breast enlargement [None]

NARRATIVE: CASE EVENT DATE: 20220720
